FAERS Safety Report 7241262-5 (Version None)
Quarter: 2011Q1

REPORT INFORMATION
  Report Type: 
  Country: None (occurrence: None)
  Receive Date: 20110124
  Receipt Date: 20110118
  Transmission Date: 20110831
  Serious: Yes (Other)
  Sender: FDA-Public Use
  Company Number: A0906909A

PATIENT
  Age: 85 Year
  Sex: Male

DRUGS (3)
  1. ANTI-CHOLESTEROL MEDICATION [Concomitant]
  2. BLOOD PRESSURE MEDICATION [Concomitant]
  3. REQUIP XL [Suspect]
     Route: 048
     Dates: end: 20110104

REACTIONS (2)
  - AGITATION [None]
  - HALLUCINATION [None]
